FAERS Safety Report 5669180-4 (Version None)
Quarter: 2008Q1

REPORT INFORMATION
  Report Type: 
  Country: None (occurrence: None)
  Receive Date: 20080317
  Receipt Date: 20080317
  Transmission Date: 20080703
  Serious: No
  Sender: FDA-Public Use
  Company Number: None

PATIENT
  Age: 21 Year
  Sex: Male
  Weight: 45.3597 kg

DRUGS (1)
  1. HEPARIN [Suspect]
     Indication: SURGERY
     Dosage: 1000 UNITS IV
     Route: 042
     Dates: start: 20080310, end: 20080314

REACTIONS (1)
  - DRUG EFFECT DECREASED [None]
